FAERS Safety Report 7296574-6 (Version None)
Quarter: 2011Q1

REPORT INFORMATION
  Report Type: 
  Country: None (occurrence: None)
  Receive Date: 20110216
  Receipt Date: 20110207
  Transmission Date: 20110831
  Serious: Yes (Hospitalization, Disabling, Other)
  Sender: FDA-Public Use
  Company Number: PHHY2010AU74921

PATIENT
  Sex: Male
  Weight: 60 kg

DRUGS (2)
  1. AFINITOR [Suspect]
     Dosage: 5 MG, DAILY
     Route: 048
     Dates: start: 20101108, end: 20110112
  2. AFINITOR [Suspect]
     Indication: PANCREATIC NEUROENDOCRINE TUMOUR
     Dosage: 10 MG, DAILY
     Route: 048
     Dates: start: 20100729

REACTIONS (9)
  - DIZZINESS [None]
  - MALAISE [None]
  - DECREASED APPETITE [None]
  - WEIGHT DECREASED [None]
  - ANAEMIA [None]
  - NEOPLASM MALIGNANT [None]
  - LETHARGY [None]
  - TOXICITY TO VARIOUS AGENTS [None]
  - PAIN [None]
